FAERS Safety Report 7907077-7 (Version None)
Quarter: 2011Q4

REPORT INFORMATION
  Report Type: 
  Country: None (occurrence: None)
  Receive Date: 20111110
  Receipt Date: 20111031
  Transmission Date: 20120403
  Serious: Yes (Hospitalization, Other)
  Sender: FDA-Public Use
  Company Number: GB-VERTEX PHARMACEUTICALS INC.-AE-2011-002939

PATIENT
  Sex: Male

DRUGS (4)
  1. RIBAVIRIN [Concomitant]
     Indication: HEPATITIS C
     Route: 048
  2. VX-950 [Suspect]
     Indication: HEPATITIS C
     Route: 048
     Dates: start: 20110928
  3. PEGASYS [Concomitant]
     Indication: HEPATITIS C
     Dates: start: 20110928
  4. RIBAVIRIN [Concomitant]
     Route: 048
     Dates: start: 20111027

REACTIONS (2)
  - MALAISE [None]
  - ANAEMIA [None]
